FAERS Safety Report 5406784-8 (Version None)
Quarter: 2007Q3

REPORT INFORMATION
  Report Type: 
  Country: None (occurrence: None)
  Receive Date: 20070807
  Receipt Date: 20070802
  Transmission Date: 20080115
  Serious: Yes (Death)
  Sender: FDA-Public Use
  Company Number: PHHO2007JP10822

PATIENT
  Sex: Female

DRUGS (5)
  1. LOCHOL [Suspect]
     Indication: HYPERCHOLESTEROLAEMIA
     Dosage: 40MG
     Route: 048
     Dates: start: 20010228
  2. LENDORMIN [Concomitant]
     Indication: INSOMNIA
  3. NATEGLINIDE [Concomitant]
     Indication: DIABETES MELLITUS
  4. KINEDAK [Concomitant]
     Indication: DIABETES MELLITUS
  5. SIGMART [Concomitant]
     Indication: ANGINA PECTORIS

REACTIONS (1)
  - DEATH [None]
